FAERS Safety Report 18056577 (Version 1)
Quarter: 2020Q3

REPORT INFORMATION
  Report Type: Spontaneous
  Country: IT (occurrence: IT)
  Receive Date: 20200722
  Receipt Date: 20200722
  Transmission Date: 20201103
  Serious: Yes (Hospitalization)
  Sender: FDA-Public Use
  Company Number: NVSC2020IT198632

PATIENT
  Age: 51 Year
  Sex: Male

DRUGS (2)
  1. DEPAKIN [Interacting]
     Active Substance: VALPROATE SODIUM
     Indication: GENERALISED TONIC-CLONIC SEIZURE
     Dosage: 1 DF, QD
     Route: 048
     Dates: start: 20191109, end: 20200504
  2. CARBAMAZEPINE. [Suspect]
     Active Substance: CARBAMAZEPINE
     Indication: EPILEPSY
     Dosage: 1 DF
     Route: 048
     Dates: start: 20200504, end: 20200504

REACTIONS (5)
  - Craniocerebral injury [Unknown]
  - Periorbital oedema [Unknown]
  - Haematoma [Unknown]
  - Syncope [Unknown]
  - Drug interaction [Unknown]

NARRATIVE: CASE EVENT DATE: 20200504
